FAERS Safety Report 26078128 (Version 1)
Quarter: 2025Q4

REPORT INFORMATION
  Report Type: Spontaneous
  Country: EU (occurrence: EU)
  Receive Date: 20251122
  Receipt Date: 20251122
  Transmission Date: 20260119
  Serious: Yes (Other)
  Sender: CELLTRION
  Company Number: EU-CELLTRION INC.-2025GR042037

PATIENT

DRUGS (4)
  1. INFLIXIMAB [Suspect]
     Active Substance: INFLIXIMAB
     Indication: Colitis ulcerative
     Dosage: 120 MG EVERY 15 DAYS
     Route: 058
     Dates: start: 202509
  2. INFLIXIMAB [Suspect]
     Active Substance: INFLIXIMAB
     Indication: Colitis ulcerative
     Dosage: INDUCTION SCHEME/ LOADING DOSE
     Route: 041
     Dates: start: 202505
  3. INFLIXIMAB [Suspect]
     Active Substance: INFLIXIMAB
     Dosage: INDUCTION SCHEME/ LOADING DOSE
     Route: 041
     Dates: end: 2025
  4. INFLIXIMAB [Suspect]
     Active Substance: INFLIXIMAB
     Dosage: 10 MG/KG, EVERY 4 WEEKS
     Route: 041
     Dates: start: 202509

REACTIONS (3)
  - Symptom recurrence [Not Recovered/Not Resolved]
  - Loss of therapeutic response [Not Recovered/Not Resolved]
  - Intentional product use issue [Unknown]
